FAERS Safety Report 7530992-3 (Version None)
Quarter: 2011Q2

REPORT INFORMATION
  Report Type: 
  Country: None (occurrence: None)
  Receive Date: 20110608
  Receipt Date: 20090412
  Transmission Date: 20111010
  Serious: Yes (Death, Hospitalization, Other)
  Sender: FDA-Public Use
  Company Number: US-BAYER-200917967NA

PATIENT
  Age: 68 Year
  Sex: Male
  Weight: 70 kg

DRUGS (8)
  1. PLASMA [Concomitant]
     Dosage: 3 UNITS
     Route: 042
     Dates: start: 20030325
  2. TRASYLOL [Suspect]
     Indication: AORTIC VALVE REPLACEMENT
     Dosage: 200 CC PRIME, THEN 50 ML/HR
     Route: 042
     Dates: start: 20030325, end: 20030325
  3. RED BLOOD CELLS [Concomitant]
     Dosage: 4 UNITS
     Route: 042
     Dates: start: 20030325
  4. NITROGLYCERIN [Concomitant]
     Dosage: 0.2 MG
     Route: 042
     Dates: start: 20030325, end: 20030325
  5. VANCOMYCIN [Concomitant]
     Dosage: 500MG
  6. INSULIN [Concomitant]
     Dosage: 15 UNITS
     Route: 042
     Dates: start: 20030325, end: 20030325
  7. HEPARIN [Concomitant]
     Dosage: UNK
     Route: 042
     Dates: start: 20030325, end: 20030325
  8. KEFZOL [Concomitant]
     Dosage: 2 GMS
     Route: 042
     Dates: start: 20030325, end: 20030325

REACTIONS (14)
  - RENAL FAILURE [None]
  - RENAL INJURY [None]
  - UNEVALUABLE EVENT [None]
  - RENAL IMPAIRMENT [None]
  - STRESS [None]
  - FEAR [None]
  - INJURY [None]
  - EMOTIONAL DISTRESS [None]
  - PAIN [None]
  - ANXIETY [None]
  - DEATH [None]
  - MULTI-ORGAN FAILURE [None]
  - MYOCARDIAL INFARCTION [None]
  - ANHEDONIA [None]
